FAERS Safety Report 8173246 (Version 5)
Quarter: 2012Q4

REPORT INFORMATION
  Report Type: Report from Study
  Country: BR (occurrence: BR)
  Receive Date: 20111007
  Receipt Date: 20120830
  Transmission Date: 20130627
  Serious: Yes (Other)
  Sender: FDA-Public Use
  Company Number: BR-ABBOTT-11P-020-0860930-00

PATIENT
  Age: 59 None
  Sex: Male
  Weight: 78 kg

DRUGS (3)
  1. HUMIRA 40 MG/ 0.8 ML PRE-FILLED SYRINGE [Suspect]
     Indication: PSORIASIS
     Dosage: 2, once
     Route: 058
     Dates: start: 20100101, end: 20100101
  2. HUMIRA 40 MG/ 0.8 ML PRE-FILLED SYRINGE [Suspect]
     Route: 058
     Dates: start: 20100115, end: 201102
  3. LOSARTAN [Concomitant]
     Indication: PRODUCT USED FOR UNKNOWN INDICATION

REACTIONS (4)
  - Gastrointestinal neoplasm [Unknown]
  - Metastases to liver [Unknown]
  - Hepatic neoplasm [Not Recovered/Not Resolved]
  - Immunodeficiency [Unknown]
